FAERS Safety Report 15860418 (Version 1)
Quarter: 2019Q1

REPORT INFORMATION
  Report Type: Spontaneous
  Country: US (occurrence: US)
  Receive Date: 20190123
  Receipt Date: 20190123
  Transmission Date: 20190417
  Serious: Yes (Hospitalization)
  Sender: FDA-Public Use
  Company Number: US-MYLANLABS-2019M1005283

PATIENT
  Age: 33 Year
  Sex: Male

DRUGS (1)
  1. LIOTHYRONINE [Suspect]
     Active Substance: LIOTHYRONINE
     Indication: PERFORMANCE ENHANCING PRODUCT USE
     Route: 065

REACTIONS (3)
  - Thyrotoxic periodic paralysis [Recovered/Resolved]
  - Drug abuse [Recovered/Resolved]
  - Hypokalaemia [Recovered/Resolved]
